FAERS Safety Report 25669485 (Version 1)
Quarter: 2025Q3

REPORT INFORMATION
  Report Type: Spontaneous
  Country: EU (occurrence: EU)
  Receive Date: 20250812
  Receipt Date: 20250812
  Transmission Date: 20251021
  Serious: Yes (Hospitalization)
  Sender: SAMSUNG BIOEPIS
  Company Number: None

PATIENT
  Age: 31 Year
  Sex: Male
  Weight: 103.5 kg

DRUGS (1)
  1. ADALIMUMAB [Suspect]
     Active Substance: ADALIMUMAB
     Indication: Hidradenitis
     Route: 058
     Dates: start: 202503

REACTIONS (1)
  - Vena cava embolism [Not Recovered/Not Resolved]

NARRATIVE: CASE EVENT DATE: 20250530
